FAERS Safety Report 15861307 (Version 2)
Quarter: 2020Q1

REPORT INFORMATION
  Report Type: Spontaneous
  Country: FR (occurrence: FR)
  Receive Date: 20190124
  Receipt Date: 20200130
  Transmission Date: 20200409
  Serious: Yes (Other)
  Sender: FDA-Public Use
  Company Number: FR-CELLTRION INC.-2019FR017946

PATIENT

DRUGS (12)
  1. ABACAVIR. [Concomitant]
     Active Substance: ABACAVIR
     Dosage: UNK
     Route: 065
  2. LAMIVUDINE. [Concomitant]
     Active Substance: LAMIVUDINE
     Indication: HIV INFECTION
     Dosage: ADDITIONAL INFO: POST MCNS DIAGNOSIS
     Route: 065
  3. ETRAVIRINE [Concomitant]
     Active Substance: ETRAVIRINE
     Dosage: AS A PART OF HIGHLY ACTIVE ANTIRETROVIRAL THERAPY (HAART) REGIMEN
     Route: 065
  4. EMTRICITABINE [Concomitant]
     Active Substance: EMTRICITABINE
     Dosage: AS A PART OF HIGHLY ACTIVE ANTIRETROVIRAL THERAPY (HAART) REGIMEN
     Route: 065
  5. RITUXIMAB (UNKNOWN) [Suspect]
     Active Substance: RITUXIMAB
     Indication: NEPHROTIC SYNDROME
     Dosage: UNK
     Route: 065
  6. ETRAVIRINE [Concomitant]
     Active Substance: ETRAVIRINE
     Indication: HIV INFECTION
     Dosage: THERAPY CONTINUED. AS A PART OF HIGHLY ACTIVE ANTIRETROVIRAL THERAPY (HAART) REGIMEN.
     Route: 065
  7. LAMIVUDINE. [Concomitant]
     Active Substance: LAMIVUDINE
     Dosage: UNK
     Route: 065
  8. ETRAVIRINE [Concomitant]
     Active Substance: ETRAVIRINE
     Indication: PRODUCT USED FOR UNKNOWN INDICATION
     Dosage: UNK
     Route: 065
  9. TENOFOVIR DISOPROXIL [Suspect]
     Active Substance: TENOFOVIR DISOPROXIL
     Dosage: AS A PART OF HIGHLY ACTIVE ANTIRETROVIRAL THERAPY (HAART) REGIMEN
     Route: 065
  10. ABACAVIR. [Concomitant]
     Active Substance: ABACAVIR
     Indication: HIV INFECTION
     Dosage: POST MCNS DIAGNOSIS
     Route: 065
  11. TENOFOVIR DISOPROXIL [Suspect]
     Active Substance: TENOFOVIR DISOPROXIL
     Indication: HIV INFECTION
     Dosage: PRIOR MCNS DIAGNOSIS. AS A PART OF HIGHLY ACTIVE ANTIRETROVIRAL THERAPY (HAART) REGIMEN.
     Route: 065
  12. EMTRICITABINE [Concomitant]
     Active Substance: EMTRICITABINE
     Indication: HIV INFECTION
     Dosage: PRIOR MCNS DIAGNOSIS. AS A PART OF HIGHLY ACTIVE ANTIRETROVIRAL THERAPY (HAART) REGIMEN.
     Route: 065

REACTIONS (3)
  - Pneumonia [Unknown]
  - Product use in unapproved indication [Unknown]
  - Acute kidney injury [Unknown]
